FAERS Safety Report 9411486 (Version 3)
Quarter: 2013Q4

REPORT INFORMATION
  Report Type: Spontaneous
  Country: JP (occurrence: JP)
  Receive Date: 20130722
  Receipt Date: 20131007
  Transmission Date: 20140711
  Serious: Yes (Hospitalization, Other)
  Sender: FDA-Public Use
  Company Number: JP-ROCHE-1250851

PATIENT
  Age: 72 Year
  Sex: Male
  Weight: 52 kg

DRUGS (7)
  1. AVASTIN [Suspect]
     Indication: LARGE CELL LUNG CANCER METASTATIC
     Route: 041
     Dates: start: 20120409, end: 20130218
  2. CARBOPLATIN [Concomitant]
     Dosage: DOSAGE IS UNCERTAIN.
     Route: 041
     Dates: start: 20120111
  3. PACLITAXEL [Concomitant]
     Dosage: DOSAGE IS UNCERTAIN.
     Route: 041
     Dates: start: 20120111
  4. DIOVAN [Concomitant]
     Indication: LARGE CELL LUNG CANCER METASTATIC
     Route: 048
  5. URINORM [Concomitant]
     Indication: LARGE CELL LUNG CANCER METASTATIC
     Route: 048
  6. VESICARE [Concomitant]
     Indication: BENIGN PROSTATIC HYPERPLASIA
     Route: 048
  7. MUCOSOLVAN [Concomitant]
     Indication: EMPHYSEMA
     Route: 065

REACTIONS (9)
  - Dizziness [Recovering/Resolving]
  - Muscular weakness [Recovering/Resolving]
  - Cerebral atrophy [Not Recovered/Not Resolved]
  - Wernicke^s encephalopathy [Recovering/Resolving]
  - Delirium [Recovering/Resolving]
  - Hallucination [Recovering/Resolving]
  - Hypertension [Recovering/Resolving]
  - Fall [Unknown]
  - Gait disturbance [Recovering/Resolving]
